FAERS Safety Report 4895766-0 (Version None)
Quarter: 2005Q4

REPORT INFORMATION
  Report Type: 
  Country: None (occurrence: None)
  Receive Date: 20051220
  Receipt Date: 20050913
  Transmission Date: 20060501
  Serious: Yes (Other)
  Sender: FDA-Public Use
  Company Number: 412188

PATIENT
  Age: 86 Year
  Sex: Female

DRUGS (1)
  1. BONIVA [Suspect]
     Indication: OSTEOPOROSIS
     Dosage: 150 GRAM ORAL
     Route: 048
     Dates: start: 20050815, end: 20050815

REACTIONS (3)
  - BONE PAIN [None]
  - DIARRHOEA [None]
  - NAUSEA [None]
